FAERS Safety Report 7701430-2 (Version None)
Quarter: 2011Q3

REPORT INFORMATION
  Report Type: 
  Country: None (occurrence: None)
  Receive Date: 20110822
  Receipt Date: 20110812
  Transmission Date: 20111222
  Serious: Yes (Hospitalization)
  Sender: FDA-Public Use
  Company Number: JP-ASTRAZENECA-2011SE48814

PATIENT
  Age: 68 Year
  Sex: Female
  Weight: 51 kg

DRUGS (13)
  1. PANTOSIN [Concomitant]
     Indication: CONSTIPATION
     Route: 065
  2. TIMOLEATE [Concomitant]
     Route: 047
  3. CANDESARTAN CILEXETIL AND HYDROCHLOROTHIAZIDE [Suspect]
     Indication: HYPERTENSION
     Route: 048
     Dates: end: 20110810
  4. EVISTA [Concomitant]
     Indication: OSTEOPOROSIS
     Route: 048
  5. MAGNESIUM OXIDE [Concomitant]
     Indication: CONSTIPATION
     Route: 048
  6. SUCCINYLCHOLINE CHLORIDE INJ [Concomitant]
     Route: 042
     Dates: start: 20110805
  7. ROCURONIUM BROMIDE [Concomitant]
     Route: 042
     Dates: start: 20110805
  8. BRIDION [Concomitant]
     Route: 042
     Dates: start: 20110805
  9. ALFAROL [Concomitant]
     Indication: OSTEOPOROSIS
     Route: 048
  10. TSUMURA DAIKENTYUTO [Concomitant]
     Indication: CONSTIPATION
     Route: 048
  11. SOFT SANTEAR [Concomitant]
     Route: 047
  12. SEVOFLURANE [Concomitant]
     Route: 055
     Dates: start: 20110805
  13. DIPRIVAN [Concomitant]
     Route: 042
     Dates: start: 20110805

REACTIONS (5)
  - DYSKINESIA [None]
  - ALTERED STATE OF CONSCIOUSNESS [None]
  - HYPONATRAEMIA [None]
  - VOMITING [None]
  - HEADACHE [None]
